FAERS Safety Report 18734596 (Version 1)
Quarter: 2021Q1

REPORT INFORMATION
  Report Type: Spontaneous
  Country: US (occurrence: US)
  Receive Date: 20210112
  Receipt Date: 20210112
  Transmission Date: 20210419
  Serious: No
  Sender: FDA-Public Use
  Company Number: None

PATIENT
  Age: 9 Month
  Sex: Male
  Weight: 5.85 kg

DRUGS (1)
  1. SIGNATURE CARE INFANTS PAIN RELIEF [Suspect]
     Active Substance: ACETAMINOPHEN
     Indication: TEETHING
     Route: 048
     Dates: start: 20210110, end: 20210111

REACTIONS (2)
  - Product administered to patient of inappropriate age [None]
  - Product label confusion [None]

NARRATIVE: CASE EVENT DATE: 20210110
